FAERS Safety Report 7488875-3 (Version None)
Quarter: 2011Q2

REPORT INFORMATION
  Report Type: 
  Country: None (occurrence: None)
  Receive Date: 20110518
  Receipt Date: 20110511
  Transmission Date: 20111010
  Serious: Yes (Other)
  Sender: FDA-Public Use
  Company Number: GXKR2011DE01677

PATIENT
  Sex: Male
  Weight: 2.83 kg

DRUGS (3)
  1. PRESINOL [Concomitant]
     Indication: HYPERTENSION
     Dosage: MATERNAL DOSE: 500 MG, TID
     Route: 064
  2. METOPROLOL TARTRATE [Suspect]
     Indication: HYPERTENSION
     Dosage: MATERNAL DOSE: 47.5 MG DAILY
     Route: 064
  3. FOLIC ACID [Concomitant]
     Indication: PROPHYLAXIS OF NEURAL TUBE DEFECT
     Dosage: MATERNAL DOSE: 0.8 MG, UNK
     Route: 064

REACTIONS (2)
  - SMALL FOR DATES BABY [None]
  - DRUG EXPOSURE DURING PREGNANCY [None]
